FAERS Safety Report 21493955 (Version 1)
Quarter: 2022Q4

REPORT INFORMATION
  Report Type: Report from Study
  Country: DE (occurrence: DE)
  Receive Date: 20221021
  Receipt Date: 20221021
  Transmission Date: 20230112
  Serious: Yes (Hospitalization, Other)
  Sender: FDA-Public Use
  Company Number: DE-TEVA-2022-DE-2046110

PATIENT
  Age: 59 Year
  Sex: Female

DRUGS (2)
  1. COPAXONE [Suspect]
     Active Substance: GLATIRAMER ACETATE
     Indication: Multiple sclerosis
     Dosage: 20 MILLIGRAM DAILY;
     Route: 065
     Dates: start: 200311, end: 201511
  2. COPAXONE [Suspect]
     Active Substance: GLATIRAMER ACETATE
     Dosage: 40 MG/ML
     Route: 065
     Dates: start: 201511

REACTIONS (5)
  - Cerebellar infarction [Not Recovered/Not Resolved]
  - Hemiparesis [Unknown]
  - Lacunar infarction [Not Recovered/Not Resolved]
  - Dizziness [Unknown]
  - Balance disorder [Not Recovered/Not Resolved]

NARRATIVE: CASE EVENT DATE: 20091001
